FAERS Safety Report 9962921 (Version 1)
Quarter: 2014Q1

REPORT INFORMATION
  Report Type: Report from Study
  Country: US (occurrence: US)
  Receive Date: 20140305
  Receipt Date: 20140305
  Transmission Date: 20141002
  Serious: No
  Sender: FDA-Public Use
  Company Number: US-ABBVIE-13P-163-1114666-00

PATIENT
  Sex: Female

DRUGS (6)
  1. HUMIRA [Suspect]
     Indication: CROHN^S DISEASE
     Dates: start: 20130620
  2. BENADRYL [Concomitant]
     Indication: IRRITABLE BOWEL SYNDROME
  3. PROPRANOLOL [Concomitant]
     Indication: MIGRAINE PROPHYLAXIS
  4. PROPRANOLOL [Concomitant]
     Indication: TACHYCARDIA
  5. AMITRIPTYLINE [Concomitant]
     Indication: MIGRAINE PROPHYLAXIS
  6. ZOMIG [Concomitant]
     Indication: MIGRAINE

REACTIONS (1)
  - Influenza like illness [Recovering/Resolving]
